FAERS Safety Report 6373213-X (Version None)
Quarter: 2009Q3

REPORT INFORMATION
  Report Type: 
  Country: None (occurrence: None)
  Receive Date: 20090924
  Receipt Date: 20090116
  Transmission Date: 20100115
  Serious: No
  Sender: FDA-Public Use
  Company Number: US-ASTRAZENECA-2009UW01520

PATIENT
  Age: 55 Year
  Sex: Female
  Weight: 90.7 kg

DRUGS (6)
  1. SEROQUEL XR [Suspect]
     Dosage: 400 MG
     Route: 048
     Dates: start: 20050101
  2. TOPROL-XL [Concomitant]
     Route: 048
  3. DEPAKOTE [Concomitant]
  4. KLONOPIN [Concomitant]
  5. DIOVAN [Concomitant]
  6. TENEX [Concomitant]

REACTIONS (1)
  - MYALGIA [None]
